FAERS Safety Report 13532303 (Version 2)
Quarter: 2017Q2

REPORT INFORMATION
  Report Type: Report from Study
  Country: US (occurrence: US)
  Receive Date: 20170510
  Receipt Date: 20170517
  Transmission Date: 20170830
  Serious: Yes (Death, Life-Threatening, Hospitalization, Other)
  Sender: FDA-Public Use
  Company Number: US-GILEAD-2017-0272213

PATIENT
  Age: 49 Year
  Sex: Male

DRUGS (1)
  1. AMBRISENTAN [Suspect]
     Active Substance: AMBRISENTAN
     Indication: PRODUCT USED FOR UNKNOWN INDICATION
     Dosage: 10 MG, QD
     Route: 065
     Dates: start: 20160625

REACTIONS (4)
  - Unresponsive to stimuli [Not Recovered/Not Resolved]
  - Death [Fatal]
  - Mechanical ventilation [Not Recovered/Not Resolved]
  - Wean from ventilator [Not Recovered/Not Resolved]

NARRATIVE: CASE EVENT DATE: 20170505
